FAERS Safety Report 8234234-5 (Version None)
Quarter: 2012Q1

REPORT INFORMATION
  Report Type: 
  Country: None (occurrence: None)
  Receive Date: 20120326
  Receipt Date: 20120320
  Transmission Date: 20120608
  Serious: Yes (Other)
  Sender: FDA-Public Use
  Company Number: US-BAYER-2010-009124

PATIENT
  Sex: Female

DRUGS (6)
  1. YASMIN [Suspect]
     Indication: ORAL CONTRACEPTION
     Dosage: 3 MG, QD
     Route: 048
     Dates: start: 20070301, end: 20070501
  2. YASMIN [Suspect]
     Indication: POLYCYSTIC OVARIES
  3. MEGA B [Concomitant]
  4. YASMIN [Suspect]
     Indication: VAGINAL DISCHARGE
  5. VALTREX [Concomitant]
  6. GARDASIL [Concomitant]
     Indication: GENITAL HERPES

REACTIONS (3)
  - DEEP VEIN THROMBOSIS [None]
  - PAIN [None]
  - INJURY [None]
